FAERS Safety Report 7578931-3 (Version None)
Quarter: 2011Q2

REPORT INFORMATION
  Report Type: 
  Country: None (occurrence: None)
  Receive Date: 20110628
  Receipt Date: 20100721
  Transmission Date: 20111010
  Serious: Yes (Death, Hospitalization)
  Sender: FDA-Public Use
  Company Number: PHFR2010GB00749

PATIENT
  Sex: Female

DRUGS (12)
  1. LITHIUM CARBONATE [Concomitant]
     Dosage: 800 MG/DAY
     Route: 048
  2. AMISULPRIDE [Suspect]
     Dosage: 200 MG/DAY
  3. AMISULPRIDE [Suspect]
     Indication: SCHIZOPHRENIA
     Dosage: 400 MG/DAY
     Route: 048
  4. CLOZAPINE [Suspect]
     Indication: SCHIZOPHRENIA
     Dosage: 400 MG/DAY
     Route: 048
     Dates: start: 19920615
  5. VALPROATE SODIUM [Concomitant]
     Dosage: 2500 MG/DAY
     Route: 048
  6. LITHIUM CARBONATE [Concomitant]
     Indication: SCHIZOAFFECTIVE DISORDER
     Dosage: 400 MG/DAY
     Route: 048
  7. CLOZAPINE [Suspect]
     Dosage: 300 MG/DAY
     Route: 048
  8. LEVOTHYROXINE SODIUM [Concomitant]
     Dosage: 25 UG/DAY
     Route: 048
  9. DEPAKOTE [Concomitant]
     Dosage: 1500 MG/DAY
     Route: 048
  10. CLOZAPINE [Suspect]
     Dosage: 200 MG/DAY
     Route: 048
  11. LITHIUM CARBONATE [Concomitant]
     Dosage: 800 MG, UNK
     Route: 048
  12. STEROIDS NOS [Concomitant]
     Dosage: UNK
     Route: 048

REACTIONS (8)
  - DYSPNOEA [None]
  - PNEUMONIA [None]
  - WHITE BLOOD CELL COUNT INCREASED [None]
  - LOWER RESPIRATORY TRACT INFECTION [None]
  - HYPOXIA [None]
  - LEUKOCYTOSIS [None]
  - CHRONIC OBSTRUCTIVE PULMONARY DISEASE [None]
  - NEUTROPHIL COUNT INCREASED [None]
